FAERS Safety Report 9157196 (Version 1)
Quarter: 2013Q1

REPORT INFORMATION
  Report Type: Spontaneous
  Country: US (occurrence: None)
  Receive Date: 20130308
  Receipt Date: 20130308
  Transmission Date: 20140127
  Serious: Yes (Disabling, Other)
  Sender: FDA-Public Use
  Company Number: None

PATIENT
  Sex: Female
  Weight: 61.24 kg

DRUGS (3)
  1. INCIVEK [Suspect]
     Indication: HEPATITIS C
     Dosage: 200MG 3 DAILY
     Dates: start: 201203, end: 201205
  2. RIBAVIRIN [Suspect]
     Indication: HEPATITIS C
     Dosage: 400MG 2 DAILY
     Dates: start: 201203, end: 201205
  3. PEGINTERFERON ALPHA-2A(PEGINTERFERON ALFA-2A) [Concomitant]

REACTIONS (7)
  - Eye disorder [None]
  - Amnesia [None]
  - Weight decreased [None]
  - Gastrointestinal disorder [None]
  - Depression [None]
  - Alopecia [None]
  - Renal disorder [None]
